FAERS Safety Report 17647285 (Version 3)
Quarter: 2021Q3

REPORT INFORMATION
  Report Type: Spontaneous
  Country: PT (occurrence: PT)
  Receive Date: 20200409
  Receipt Date: 20210713
  Transmission Date: 20211014
  Serious: Yes (Hospitalization, Other)
  Sender: FDA-Public Use
  Company Number: PT-AUROBINDO-AUR-APL-2020-016827

PATIENT
  Age: 71 Year
  Sex: Female

DRUGS (1)
  1. AMIODARONE [Suspect]
     Active Substance: AMIODARONE
     Indication: ARRHYTHMIA
     Dosage: 200 MILLIGRAM, ONCE A DAY
     Route: 065

REACTIONS (7)
  - Arrhythmia [Recovering/Resolving]
  - Bronchiectasis [Recovered/Resolved]
  - Toxicity to various agents [Recovered/Resolved]
  - Pulmonary toxicity [Recovered/Resolved]
  - Interstitial lung disease [Recovered/Resolved]
  - Pleural thickening [Recovered/Resolved]
  - Pulmonary fibrosis [Recovered/Resolved]
